FAERS Safety Report 5750476-2 (Version None)
Quarter: 2008Q2

REPORT INFORMATION
  Report Type: 
  Country: None (occurrence: None)
  Receive Date: 20080528
  Receipt Date: 20080122
  Transmission Date: 20081010
  Serious: No
  Sender: FDA-Public Use
  Company Number: US-KINGPHARMUSA00001-K200800077

PATIENT

DRUGS (3)
  1. AVINZA [Suspect]
     Indication: PAIN IN EXTREMITY
     Dosage: 60 MG, SINGLE
     Route: 048
     Dates: start: 20080122
  2. PERCOCET [Concomitant]
  3. PREVACID [Concomitant]

REACTIONS (1)
  - DRUG INEFFECTIVE [None]
